FAERS Safety Report 7040346-4 (Version None)
Quarter: 2010Q4

REPORT INFORMATION
  Report Type: 
  Country: None (occurrence: None)
  Receive Date: 20101012
  Receipt Date: 20101006
  Transmission Date: 20110411
  Serious: Yes (Other)
  Sender: FDA-Public Use
  Company Number: US-ALLERGAN-1012855US

PATIENT
  Age: 65 Year
  Sex: Female

DRUGS (1)
  1. REFRESH TEARS [Suspect]
     Indication: DRY EYE
     Dosage: ONE DROP
     Route: 047
     Dates: start: 20100901, end: 20101005

REACTIONS (3)
  - CONJUNCTIVITIS INFECTIVE [None]
  - EXPIRED DRUG ADMINISTERED [None]
  - SCLERAL HYPERAEMIA [None]
